FAERS Safety Report 12114164 (Version 1)
Quarter: 2016Q1

REPORT INFORMATION
  Report Type: Spontaneous
  Country: US (occurrence: US)
  Receive Date: 20160225
  Receipt Date: 20160225
  Transmission Date: 20160526
  Serious: No
  Sender: FDA-Public Use
  Company Number: US-LANTHEUS-LMI-2015-00069

PATIENT
  Age: 64 Year
  Sex: Male
  Weight: 63 kg

DRUGS (7)
  1. EFFIENT [Concomitant]
     Active Substance: PRASUGREL HYDROCHLORIDE
  2. DEFINITY [Suspect]
     Active Substance: PERFLUTREN
     Indication: STRESS ECHOCARDIOGRAM
     Dosage: DILUTED DEFINITY
     Route: 040
     Dates: start: 20150206, end: 20150206
  3. NITROSTAT [Concomitant]
     Active Substance: NITROGLYCERIN
  4. DEFINITY [Suspect]
     Active Substance: PERFLUTREN
     Indication: STRESS ECHOCARDIOGRAM
     Dosage: DILUTED DEFINITY
     Route: 040
     Dates: start: 20150206, end: 20150206
  5. COREG [Concomitant]
     Active Substance: CARVEDILOL
  6. ASPIRIN. [Concomitant]
     Active Substance: ASPIRIN
  7. COZAAR [Concomitant]
     Active Substance: LOSARTAN POTASSIUM

REACTIONS (3)
  - Hypoaesthesia oral [Unknown]
  - Dizziness [Unknown]
  - Dry throat [Unknown]

NARRATIVE: CASE EVENT DATE: 20150206
